FAERS Safety Report 5579254-4 (Version None)
Quarter: 2008Q1

REPORT INFORMATION
  Report Type: 
  Country: None (occurrence: None)
  Receive Date: 20080102
  Receipt Date: 20071219
  Transmission Date: 20080703
  Serious: Yes (Other)
  Sender: FDA-Public Use
  Company Number: JP-ELI_LILLY_AND_COMPANY-JP200712004686

PATIENT
  Sex: Female
  Weight: 68 kg

DRUGS (1)
  1. GEMCITABINE HCL [Suspect]
     Indication: GALLBLADDER CANCER STAGE IV
     Dosage: 800 MG, DAILY (1/D)
     Route: 042
     Dates: start: 20070911, end: 20070911

REACTIONS (4)
  - FALL [None]
  - QUADRIPLEGIA [None]
  - SKIN LACERATION [None]
  - SPINAL CORD INJURY [None]
